FAERS Safety Report 20455149 (Version 2)
Quarter: 2022Q1

REPORT INFORMATION
  Report Type: Spontaneous
  Country: JP (occurrence: None)
  Receive Date: 20220210
  Receipt Date: 20220216
  Transmission Date: 20220423
  Serious: Yes (Hospitalization, Other)
  Sender: FDA-Public Use
  Company Number: 2022A058496

PATIENT
  Age: 56 Year
  Sex: Male

DRUGS (9)
  1. DAPAGLIFLOZIN [Suspect]
     Active Substance: DAPAGLIFLOZIN
     Indication: Type 2 diabetes mellitus
     Dosage: DOSE UNKNOWN
     Route: 048
     Dates: start: 20211224, end: 20220118
  2. PREGABALIN [Concomitant]
     Active Substance: PREGABALIN
  3. SENNOSIDES [Concomitant]
     Active Substance: SENNOSIDES
  4. TRIAZOLAM [Concomitant]
     Active Substance: TRIAZOLAM
  5. CARVEDILOL [Concomitant]
     Active Substance: CARVEDILOL
  6. ENALAPRIL [Concomitant]
     Active Substance: ENALAPRIL
  7. ISOSORBIDE DINITRATE [Concomitant]
     Active Substance: ISOSORBIDE DINITRATE
  8. DICLOFENAC SODIUM [Concomitant]
     Active Substance: DICLOFENAC SODIUM
  9. REBAMIPIDE [Concomitant]
     Active Substance: REBAMIPIDE

REACTIONS (2)
  - Fracture [Unknown]
  - Liver function test increased [Recovered/Resolved]

NARRATIVE: CASE EVENT DATE: 20220118
